FAERS Safety Report 13455676 (Version 1)
Quarter: 2017Q2

REPORT INFORMATION
  Report Type: Spontaneous
  Country: US (occurrence: US)
  Receive Date: 20170418
  Receipt Date: 20170418
  Transmission Date: 20170830
  Serious: Yes (Other)
  Sender: FDA-Public Use
  Company Number: None

PATIENT
  Age: 24 Year
  Sex: Male
  Weight: 104 kg

DRUGS (1)
  1. GEODON [Suspect]
     Active Substance: ZIPRASIDONE HYDROCHLORIDE\ZIPRASIDONE MESYLATE

REACTIONS (3)
  - Paranoia [None]
  - Anger [None]
  - Energy increased [None]

NARRATIVE: CASE EVENT DATE: 20170411
